FAERS Safety Report 10512027 (Version 2)
Quarter: 2014Q4

REPORT INFORMATION
  Report Type: Report from Study
  Country: CZ (occurrence: CZ)
  Receive Date: 20141010
  Receipt Date: 20141017
  Transmission Date: 20150528
  Serious: Yes (Hospitalization)
  Sender: FDA-Public Use
  Company Number: CZ-GILEAD-2014-0117247

PATIENT
  Age: 68 Year
  Sex: Male
  Weight: 83 kg

DRUGS (20)
  1. TANYZ [Concomitant]
     Dosage: UNK
     Dates: start: 201012
  2. TRALGIT [Concomitant]
     Active Substance: TRAMADOL
     Dosage: UNK
     Dates: start: 20140620
  3. MAGNOSOLV [Concomitant]
     Dosage: UNK
     Dates: start: 20140909
  4. KALNORMIN [Concomitant]
     Active Substance: POTASSIUM CHLORIDE
     Dosage: UNK
     Dates: start: 20140923
  5. GLUCOPHAGE [Concomitant]
     Active Substance: METFORMIN HYDROCHLORIDE
     Dosage: UNK
     Dates: start: 2008
  6. AFITEN [Concomitant]
     Dosage: UNK
     Dates: start: 20140622
  7. IDELALISIB [Suspect]
     Active Substance: IDELALISIB
     Indication: CHRONIC LYMPHOCYTIC LEUKAEMIA
     Dosage: 150 MG, BID
     Route: 048
     Dates: start: 20140826, end: 20140929
  8. HELICID                            /00661201/ [Concomitant]
     Dosage: UNK
  9. AUGMENTIN [Concomitant]
     Active Substance: AMOXICILLIN\CLAVULANATE POTASSIUM
     Dosage: UNK
     Dates: start: 20140826, end: 20140913
  10. RITUXIMAB [Suspect]
     Active Substance: RITUXIMAB
     Indication: CHRONIC LYMPHOCYTIC LEUKAEMIA
     Route: 065
  11. SIMEPAR [Concomitant]
     Dosage: UNK
     Dates: start: 2003
  12. HYLAK FORTE [Concomitant]
  13. LYRICA [Concomitant]
     Active Substance: PREGABALIN
     Dosage: UNK
  14. ARTRILOM [Concomitant]
     Dosage: UNK
  15. MILURIT [Concomitant]
     Active Substance: ALLOPURINOL
     Dosage: UNK
  16. COTRIMOXAZOL [Concomitant]
     Dosage: UNK
  17. GLIMEPIRID [Concomitant]
     Dosage: UNK
     Dates: start: 2008
  18. BENDAMUSTINE [Suspect]
     Active Substance: BENDAMUSTINE
     Indication: CHRONIC LYMPHOCYTIC LEUKAEMIA
     Route: 065
  19. HERPESIN                           /00587301/ [Concomitant]
     Dosage: UNK
     Dates: start: 20140317
  20. TEVAGRASTIM [Concomitant]
     Active Substance: FILGRASTIM
     Dosage: UNK
     Dates: start: 20140923, end: 20140927

REACTIONS (3)
  - Asthenia [Not Recovered/Not Resolved]
  - Haematuria [Recovered/Resolved]
  - Decreased appetite [Recovered/Resolved]

NARRATIVE: CASE EVENT DATE: 20140926
